FAERS Safety Report 9164674 (Version 1)
Quarter: 2013Q1

REPORT INFORMATION
  Report Type: Spontaneous
  Country: AU (occurrence: None)
  Receive Date: 20130221
  Receipt Date: 20130221
  Transmission Date: 20140127
  Serious: Yes (Hospitalization)
  Sender: FDA-Public Use
  Company Number: 2013-02312

PATIENT
  Age: 75 Year
  Sex: Female
  Weight: 75 kg

DRUGS (7)
  1. OXALIPLATIN [Suspect]
     Indication: COLORECTAL CANCER METASTATIC
     Route: 042
     Dates: start: 20121121
  2. TIVOZANIB [Suspect]
     Indication: COLORECTAL CANCER METASTATIC
     Route: 048
     Dates: start: 20121121
  3. FLUOROURACIL [Suspect]
     Indication: COLORECTAL CANCER METASTATIC
     Dosage: BOLUS STOPPED AND NEVER RESTARTED
     Route: 042
     Dates: start: 20120911, end: 20121010
  4. LEUCOVORIN [Suspect]
     Indication: COLORECTAL CANCER METASTATIC
     Route: 042
     Dates: start: 20121121
  5. METOCLOPRAMIDE [Concomitant]
  6. LOPERAMIDE [Concomitant]
  7. IMIPENEM AND CILASTATIN [Concomitant]

REACTIONS (3)
  - Fatigue [None]
  - Mobility decreased [None]
  - Muscular weakness [None]
